FAERS Safety Report 5460321-0 (Version None)
Quarter: 2007Q3

REPORT INFORMATION
  Report Type: 
  Country: None (occurrence: None)
  Receive Date: 20070919
  Receipt Date: 20070716
  Transmission Date: 20080115
  Serious: No
  Sender: FDA-Public Use
  Company Number: US-ASTRAZENECA-2007UW14727

PATIENT
  Age: 701 Month
  Sex: Female
  Weight: 72.7 kg

DRUGS (4)
  1. SEROQUEL [Suspect]
     Indication: DEPRESSION
     Dosage: 150 TO 300 MG
     Route: 048
     Dates: start: 20031101
  2. SEROQUEL [Suspect]
     Indication: POST-TRAUMATIC STRESS DISORDER
     Dosage: 150 TO 300 MG
     Route: 048
     Dates: start: 20031101
  3. SEROQUEL [Suspect]
     Indication: NIGHTMARE
     Dosage: 150 TO 300 MG
     Route: 048
     Dates: start: 20031101
  4. ZYPREXA [Concomitant]
     Indication: DEPRESSION
     Dosage: 2.5 TO 10 MG
     Dates: start: 20000901, end: 20010601

REACTIONS (6)
  - DIABETES MELLITUS [None]
  - DIZZINESS [None]
  - HYPERLIPIDAEMIA [None]
  - SUICIDAL IDEATION [None]
  - VISUAL DISTURBANCE [None]
  - WEIGHT INCREASED [None]
